FAERS Safety Report 22236655 (Version 1)
Quarter: 2023Q2

REPORT INFORMATION
  Report Type: Report from Study
  Country: US (occurrence: US)
  Receive Date: 20230420
  Receipt Date: 20230420
  Transmission Date: 20230722
  Serious: Yes (Hospitalization, Other)
  Sender: FDA-Public Use
  Company Number: US-BEIGENE KOREA-BGN-2023-003215

PATIENT

DRUGS (3)
  1. BRUKINSA [Suspect]
     Active Substance: ZANUBRUTINIB
     Indication: Chronic lymphocytic leukaemia
     Dosage: 160 MILLIGRAM, BID
     Route: 048
     Dates: start: 20220907
  2. METFORMIN [Concomitant]
     Active Substance: METFORMIN HYDROCHLORIDE
  3. IMBRUVICA [Concomitant]
     Active Substance: IBRUTINIB

REACTIONS (8)
  - Neutropenia [Unknown]
  - Haemorrhage subcutaneous [Recovering/Resolving]
  - Contusion [Recovering/Resolving]
  - Weight increased [Unknown]
  - Arthralgia [Unknown]
  - Asthenia [Unknown]
  - Fatigue [Unknown]
  - Labelled drug-drug interaction issue [Unknown]
